FAERS Safety Report 21417256 (Version 2)
Quarter: 2022Q4

REPORT INFORMATION
  Report Type: Spontaneous
  Country: CH (occurrence: CH)
  Receive Date: 20221006
  Receipt Date: 20221019
  Transmission Date: 20230113
  Serious: Yes (Other)
  Sender: FDA-Public Use
  Company Number: CH-TEVA-2022-CH-2080337

PATIENT
  Age: 64 Year
  Sex: Male

DRUGS (2)
  1. PRAMIPEXOLE [Suspect]
     Active Substance: PRAMIPEXOLE
     Indication: Restless legs syndrome
     Dosage: .5 MILLIGRAM DAILY; AT 9PM; FORMULATION: IMMEDIATE RELEASE
     Route: 065
  2. PRAMIPEXOLE [Suspect]
     Active Substance: PRAMIPEXOLE
     Dosage: .75 MILLIGRAM DAILY; FORMULATION: IMMEDIATE RELEASE
     Route: 065

REACTIONS (5)
  - Sleep disorder [Recovered/Resolved]
  - Hallucination [Recovered/Resolved]
  - Paradoxical drug reaction [Recovered/Resolved]
  - Fall [Recovered/Resolved]
  - Fracture [Recovered/Resolved]
